FAERS Safety Report 20854152 (Version 1)
Quarter: 2022Q2

REPORT INFORMATION
  Report Type: Spontaneous
  Country: US (occurrence: US)
  Receive Date: 20220520
  Receipt Date: 20220520
  Transmission Date: 20220721
  Serious: Yes (Death, Hospitalization, Other)
  Sender: FDA-Public Use
  Company Number: US-LUPIN PHARMACEUTICALS INC.-2022-07263

PATIENT
  Age: 69 Year
  Sex: Male

DRUGS (2)
  1. CALCIUM [Suspect]
     Active Substance: CALCIUM
     Indication: Hypocalcaemia
     Dosage: 438 GRAM (CALCIUM GLUCONATE)
     Route: 042
  2. CALCIUM [Suspect]
     Active Substance: CALCIUM
     Dosage: UNK (CALCIUM CARBONATE)
     Route: 048

REACTIONS (2)
  - Arrhythmia [Fatal]
  - Drug ineffective [Unknown]
